FAERS Safety Report 9280623 (Version 1)
Quarter: 2013Q2

REPORT INFORMATION
  Report Type: Spontaneous
  Country: US (occurrence: US)
  Receive Date: 20130509
  Receipt Date: 20130509
  Transmission Date: 20140414
  Serious: No
  Sender: FDA-Public Use
  Company Number: US-TEVA-402895USA

PATIENT
  Sex: Female

DRUGS (1)
  1. QNASL [Suspect]
     Dates: start: 2013

REACTIONS (1)
  - Burning sensation [Unknown]
